FAERS Safety Report 4533848-3 (Version None)
Quarter: 2004Q4

REPORT INFORMATION
  Report Type: 
  Country: None (occurrence: None)
  Receive Date: 20041221
  Receipt Date: 20041210
  Transmission Date: 20050328
  Serious: Yes (Life-Threatening, Hospitalization, Other)
  Sender: FDA-Public Use
  Company Number: PL-MERCK-0412POL00004

PATIENT
  Age: 18 Year
  Sex: Female
  Weight: 35 kg

DRUGS (8)
  1. CANCIDAS [Suspect]
     Indication: FUNGAL PERITONITIS
     Route: 051
     Dates: start: 20041125, end: 20041129
  2. ZOFRAN [Concomitant]
     Indication: ANTIEMETIC SUPPORTIVE CARE
     Route: 065
     Dates: start: 20041115
  3. DICLOFENAC [Concomitant]
     Indication: PAIN
     Route: 065
  4. PREDNISOLONE SODIUM TETRAHYDROPHTHALATE [Concomitant]
     Indication: RHEUMATOID ARTHRITIS
     Route: 065
  5. INSULIN [Concomitant]
     Indication: DIABETES MELLITUS
     Route: 065
  6. SULFAMETHOXAZOLE AND TRIMETHOPRIM [Concomitant]
     Indication: INFECTION
     Route: 048
     Dates: start: 20041120, end: 20041130
  7. AMPHOTERICIN B [Concomitant]
     Indication: FUNGAL INFECTION
     Route: 065
     Dates: start: 20041105, end: 20041124
  8. ANCOTIL [Concomitant]
     Route: 065
     Dates: start: 20041113, end: 20041125

REACTIONS (2)
  - GASTROINTESTINAL HAEMORRHAGE [None]
  - PANCYTOPENIA [None]
